FAERS Safety Report 4661477-X (Version None)
Quarter: 2005Q2

REPORT INFORMATION
  Report Type: 
  Country: None (occurrence: None)
  Receive Date: 20050512
  Receipt Date: 20050512
  Transmission Date: 20051028
  Serious: Yes (Other)
  Sender: FDA-Public Use
  Company Number: None

PATIENT
  Age: 41 Year
  Sex: Female
  Weight: 56.246 kg

DRUGS (2)
  1. FACTIVE [Suspect]
     Indication: PHARYNGITIS STREPTOCOCCAL
     Dosage: 1 TABLET   ONCE A DAY  ORAL
     Route: 048
     Dates: start: 20050503, end: 20050509
  2. FACTIVE [Suspect]
     Indication: SINUSITIS
     Dosage: 1 TABLET   ONCE A DAY  ORAL
     Route: 048
     Dates: start: 20050503, end: 20050509

REACTIONS (3)
  - PRURITUS [None]
  - RASH GENERALISED [None]
  - SWELLING [None]
